FAERS Safety Report 24601021 (Version 1)
Quarter: 2024Q4

REPORT INFORMATION
  Report Type: Report from Study
  Country: CA (occurrence: CA)
  Receive Date: 20241110
  Receipt Date: 20241110
  Transmission Date: 20250115
  Serious: Yes (Other)
  Sender: ABBVIE
  Company Number: CA-ABBVIE-5989263

PATIENT
  Age: 55 Year
  Sex: Female
  Weight: 57 kg

DRUGS (3)
  1. SKYRIZI [Suspect]
     Active Substance: RISANKIZUMAB-RZAA
     Indication: Crohn^s disease
     Route: 058
     Dates: start: 20240809
  2. SKYRIZI [Suspect]
     Active Substance: RISANKIZUMAB-RZAA
     Indication: Psoriasis
  3. RENFLEXIS [Suspect]
     Active Substance: INFLIXIMAB-ABDA
     Indication: Product used for unknown indication
     Route: 065

REACTIONS (11)
  - Polyp [Unknown]
  - Malaise [Unknown]
  - Gastrooesophageal reflux disease [Unknown]
  - Liver function test increased [Unknown]
  - Lymphadenopathy [Unknown]
  - Eye disorder [Recovered/Resolved]
  - Psoriasis [Unknown]
  - Mouth ulceration [Unknown]
  - Social problem [Unknown]
  - Oesophageal disorder [Unknown]
  - Impaired work ability [Unknown]

NARRATIVE: CASE EVENT DATE: 20240101
